FAERS Safety Report 9227071 (Version 1)
Quarter: 2013Q2

REPORT INFORMATION
  Report Type: Spontaneous
  Country: IT (occurrence: IT)
  Receive Date: 20130412
  Receipt Date: 20130412
  Transmission Date: 20140414
  Serious: Yes (Death)
  Sender: FDA-Public Use
  Company Number: IT-UCBSA-082711

PATIENT
  Age: 37 Year
  Sex: Male

DRUGS (5)
  1. LEVETIRACETAM [Suspect]
     Indication: CONVULSION
     Dosage: DAILY DOSE-3000 MG
  2. PREGABALIN [Suspect]
     Indication: CONVULSION
     Dosage: DAILY DOSE-600 MG/DAY
  3. CLOBAZAN [Suspect]
     Indication: CONVULSION
     Dosage: DAILY DOSE-4 MG/DAY
  4. FOTEMUSTINE [Concomitant]
     Indication: CONVULSION
  5. BEVACIZUMAB [Concomitant]
     Indication: CONVULSION

REACTIONS (2)
  - Death [Fatal]
  - Disease progression [None]
